FAERS Safety Report 6996915-0 (Version None)
Quarter: 2010Q3

REPORT INFORMATION
  Report Type: 
  Country: None (occurrence: None)
  Receive Date: 20100918
  Receipt Date: 20090721
  Transmission Date: 20110219
  Serious: Yes (Other)
  Sender: FDA-Public Use
  Company Number: US-WYE-H10247209

PATIENT
  Age: 34 Year
  Sex: Male

DRUGS (2)
  1. EFFEXOR XR [Suspect]
     Indication: DEPRESSION
     Dosage: STARTED AT UNKNOWN DOSE AND TITRATED UP
     Route: 048
     Dates: start: 20070101
  2. EFFEXOR XR [Suspect]
     Route: 048

REACTIONS (1)
  - SUICIDAL IDEATION [None]
